FAERS Safety Report 10229792 (Version 3)
Quarter: 2014Q3

REPORT INFORMATION
  Report Type: Spontaneous
  Country: JP (occurrence: JP)
  Receive Date: 20140611
  Receipt Date: 20140708
  Transmission Date: 20150326
  Serious: Yes (Hospitalization)
  Sender: FDA-Public Use
  Company Number: JP-JNJFOC-20140603796

PATIENT
  Age: 8 Decade
  Sex: Male

DRUGS (1)
  1. ITRIZOLE [Suspect]
     Active Substance: ITRACONAZOLE
     Indication: ASPERGILLOMA
     Route: 048

REACTIONS (1)
  - Aspergilloma [Recovered/Resolved]
